FAERS Safety Report 5015112-1 (Version None)
Quarter: 2006Q2

REPORT INFORMATION
  Report Type: 
  Country: None (occurrence: None)
  Receive Date: 20060530
  Receipt Date: 20060511
  Transmission Date: 20061013
  Serious: Yes (Hospitalization)
  Sender: FDA-Public Use
  Company Number: 225449

PATIENT
  Age: 50 Year
  Sex: Female

DRUGS (2)
  1. HERCEPTIN [Suspect]
     Indication: BREAST CANCER
     Dosage: 440 MG, INTRAVENOUS
     Route: 042
     Dates: start: 20060418
  2. TAXOTERE [Suspect]
     Indication: BREAST CANCER
     Dosage: 160 MG
     Dates: start: 20060418

REACTIONS (1)
  - FEBRILE NEUTROPENIA [None]
